FAERS Safety Report 4398924-7 (Version None)
Quarter: 2004Q3

REPORT INFORMATION
  Report Type: 
  Country: None (occurrence: None)
  Receive Date: 20040715
  Receipt Date: 20031208
  Transmission Date: 20050211
  Serious: Yes (Life-Threatening, Hospitalization)
  Sender: FDA-Public Use
  Company Number: PHBS2003JP13732

PATIENT
  Sex: Male
  Weight: 3 kg

DRUGS (4)
  1. RITALIN [Suspect]
     Route: 064
     Dates: start: 20020801
  2. PAXIL [Suspect]
     Route: 064
     Dates: start: 20020801
  3. ROHYPNOL [Suspect]
     Route: 064
     Dates: start: 20020801
  4. ALPRAZOLAM [Suspect]
     Route: 064
     Dates: start: 20020801

REACTIONS (5)
  - APNOEA [None]
  - CYANOSIS [None]
  - DRUG EXPOSURE DURING PREGNANCY [None]
  - IRRITABILITY [None]
  - TREMOR [None]
